FAERS Safety Report 5442051-4 (Version None)
Quarter: 2007Q3

REPORT INFORMATION
  Report Type: 
  Country: None (occurrence: None)
  Receive Date: 20070904
  Receipt Date: 20070829
  Transmission Date: 20080115
  Serious: Yes (Hospitalization, Disabling)
  Sender: FDA-Public Use
  Company Number: SE-AVENTIS-200716825GDDC

PATIENT
  Age: 61 Year
  Sex: Female

DRUGS (27)
  1. TAXOTERE [Suspect]
     Route: 042
     Dates: start: 20070618, end: 20070618
  2. TAXOTERE [Suspect]
     Route: 042
     Dates: start: 20070709, end: 20070709
  3. HERCEPTIN [Suspect]
     Route: 042
     Dates: start: 20070416, end: 20070416
  4. HERCEPTIN [Suspect]
     Route: 042
     Dates: start: 20070507, end: 20070507
  5. HERCEPTIN [Suspect]
     Route: 042
     Dates: start: 20070528, end: 20070528
  6. HERCEPTIN [Suspect]
     Route: 042
     Dates: start: 20070709, end: 20070709
  7. BISOPROLOL [Concomitant]
  8. CITALOPRAM [Concomitant]
  9. ANDAPSIN [Concomitant]
     Dosage: DOSE: 5-10 ML X 4
  10. ZOLPIDEM TARTRATE [Concomitant]
  11. OXASCAND [Concomitant]
  12. DIFLUCAN [Concomitant]
  13. XYLOCAIN                           /00033402/ [Concomitant]
  14. ALVEDON [Concomitant]
  15. CIPROXIN                           /00697201/ [Concomitant]
     Indication: PROPHYLAXIS
  16. FLUOROURACIL INJ [Concomitant]
     Dates: start: 20070416, end: 20070416
  17. FLUOROURACIL INJ [Concomitant]
     Dates: start: 20070507, end: 20070507
  18. FLUOROURACIL INJ [Concomitant]
     Dates: start: 20070528, end: 20070528
  19. EPIRUBICIN [Concomitant]
     Dates: start: 20070416, end: 20070416
  20. EPIRUBICIN [Concomitant]
     Dates: start: 20070507, end: 20070507
  21. EPIRUBICIN [Concomitant]
     Dates: start: 20070528, end: 20070528
  22. CYCLOPHOSPHAMIDE [Concomitant]
     Dates: start: 20070416, end: 20070416
  23. CYCLOPHOSPHAMIDE [Concomitant]
     Dates: start: 20070507, end: 20070507
  24. CYCLOPHOSPHAMIDE [Concomitant]
     Dates: start: 20070528, end: 20070528
  25. NEUPOGEN [Concomitant]
     Indication: PROPHYLAXIS
  26. NEUPOGEN [Concomitant]
     Dates: start: 20070709, end: 20070709
  27. NEUPOGEN [Concomitant]
     Dates: start: 20070709, end: 20070709

REACTIONS (3)
  - GUILLAIN-BARRE SYNDROME [None]
  - NEUTROPENIA [None]
  - PULMONARY EMBOLISM [None]
